FAERS Safety Report 9188771 (Version 2)
Quarter: 2014Q2

REPORT INFORMATION
  Report Type: Report from Study
  Country: US (occurrence: US)
  Receive Date: 20130326
  Receipt Date: 20140603
  Transmission Date: 20141212
  Serious: Yes (Hospitalization)
  Sender: FDA-Public Use
  Company Number: US-ROCHE-1184448

PATIENT
  Age: 45 Year
  Sex: Male

DRUGS (23)
  1. RANIBIZUMAB [Suspect]
     Indication: DIABETIC RETINOPATHY
     Dosage: RIGHT EYE
     Route: 065
     Dates: start: 20120329
  2. RANIBIZUMAB [Suspect]
     Dosage: ROUTE OF ADMN- RIGHT EYE
     Route: 065
     Dates: start: 20120430
  3. RANIBIZUMAB [Suspect]
     Dosage: ROUTE OF ADMN- RIGHT EYE
     Route: 065
     Dates: start: 20120531
  4. RANIBIZUMAB [Suspect]
     Dosage: ROUTE OF ADMN- RIGHT EYE
     Route: 065
     Dates: start: 20120621
  5. RANIBIZUMAB [Suspect]
     Dosage: ROUTE OF ADMN- RIGHT EYE
     Route: 065
     Dates: start: 20120716
  6. RANIBIZUMAB [Suspect]
     Dosage: ROUTE OF ADMN- RIGHT EYE
     Route: 065
     Dates: start: 20120822
  7. RANIBIZUMAB [Suspect]
     Dosage: ROUTE OF ADMN- RIGHT EYE
     Route: 065
     Dates: start: 20121112
  8. RANIBIZUMAB [Suspect]
     Dosage: ROUTE OF ADMN- RIGHT EYE
     Route: 065
     Dates: start: 20121210
  9. RANIBIZUMAB [Suspect]
     Dosage: ROUTE OF ADMN- RIGHT EYE
     Route: 065
     Dates: start: 20130109
  10. RANIBIZUMAB [Suspect]
     Dosage: ROUTE OF ADMN- RIGHT EYE
     Route: 065
     Dates: start: 20130204
  11. BEVACIZUMAB [Suspect]
     Indication: OFF LABEL USE
     Dosage: ONE TIME TREATMENT
     Route: 050
     Dates: start: 20120505
  12. METFORMIN [Concomitant]
     Route: 048
  13. EZETIMIBE [Concomitant]
     Route: 065
  14. HYDROCHLOROTHIAZIDE/LISINOPRIL [Concomitant]
     Dosage: DOSE: 20/25 MG
     Route: 048
  15. SITAGLIPTIN PHOSPHATE [Concomitant]
     Route: 048
  16. PROMETHAZINE [Concomitant]
     Dosage: DOSE: 25/MG
     Route: 048
  17. TOBRAMYCIN [Concomitant]
     Dosage: ROUTE: TOPICAL OCULAR
     Route: 061
     Dates: start: 20120510
  18. SCOPOLAMINE HYDROBROMIDE [Concomitant]
     Dosage: TOPICAL-OCULAR
     Route: 061
     Dates: start: 20120510
  19. PREDNISOLONE ACETATE [Concomitant]
     Dosage: TOPICAL OCULAR
     Route: 061
     Dates: start: 20120510
  20. PREDNISOLONE ACETATE [Concomitant]
     Dosage: TOPICAL OCULAR
     Route: 061
     Dates: start: 20120531
  21. OLMESARTAN MEDOXOMIL [Concomitant]
     Route: 048
  22. INSULIN DETEMIR [Concomitant]
     Dosage: 10 UNITS
     Route: 058
  23. AZOR (UNITED STATES) [Concomitant]
     Dosage: DOSE:10/40 MG
     Route: 048

REACTIONS (2)
  - Renal impairment [Recovered/Resolved]
  - Renal failure [Not Recovered/Not Resolved]
